FAERS Safety Report 21300437 (Version 1)
Quarter: 2022Q3

REPORT INFORMATION
  Report Type: Report from Study
  Country: BR (occurrence: BR)
  Receive Date: 20220907
  Receipt Date: 20220907
  Transmission Date: 20221026
  Serious: Yes (Other)
  Sender: FDA-Public Use
  Company Number: BR-NOVARTISPH-NVSC2022BR099212

PATIENT
  Age: 81 Year
  Sex: Female

DRUGS (2)
  1. TRAVATAN [Suspect]
     Active Substance: TRAVOPROST
     Indication: Product used for unknown indication
     Dosage: UNK
     Route: 047
  2. TRAVATAN [Suspect]
     Active Substance: TRAVOPROST
     Dosage: UNK
     Route: 065

REACTIONS (7)
  - Lip and/or oral cavity cancer [Unknown]
  - Speech disorder [Recovering/Resolving]
  - Allergy to arthropod sting [Unknown]
  - Pruritus [Recovered/Resolved]
  - Erythema [Unknown]
  - Dizziness [Unknown]
  - Visual impairment [Unknown]
